FAERS Safety Report 5965748-6 (Version None)
Quarter: 2008Q4

REPORT INFORMATION
  Report Type: 
  Country: None (occurrence: None)
  Receive Date: 20081125
  Receipt Date: 20081119
  Transmission Date: 20090506
  Serious: Yes (Other)
  Sender: FDA-Public Use
  Company Number: B0546953A

PATIENT
  Age: 37 Year
  Sex: Female

DRUGS (1)
  1. LAMICTAL [Suspect]
     Indication: BIPOLAR DISORDER
     Dosage: 200MG PER DAY
     Route: 048

REACTIONS (5)
  - ANTINUCLEAR ANTIBODY [None]
  - FATIGUE [None]
  - HYPOTHYROIDISM [None]
  - THYROXINE FREE DECREASED [None]
  - TRI-IODOTHYRONINE DECREASED [None]
